FAERS Safety Report 5640545-X (Version None)
Quarter: 2008Q1

REPORT INFORMATION
  Report Type: 
  Country: None (occurrence: None)
  Receive Date: 20080227
  Receipt Date: 20080218
  Transmission Date: 20080703
  Serious: Yes (Hospitalization)
  Sender: FDA-Public Use
  Company Number: PHEH2008US01978

PATIENT
  Age: 45 Year
  Sex: Female

DRUGS (5)
  1. FAMVIR [Suspect]
     Indication: HERPES ZOSTER
     Route: 048
  2. REBIF [Suspect]
     Indication: HERPES ZOSTER
     Dates: start: 20080101, end: 20080301
  3. PROVIGIL [Suspect]
  4. ADVIL [Suspect]
     Indication: INFLUENZA LIKE ILLNESS
  5. VALTREX [Suspect]

REACTIONS (10)
  - ABDOMINAL PAIN UPPER [None]
  - CHEST PAIN [None]
  - CHILLS [None]
  - DISEASE RECURRENCE [None]
  - HEPATITIS [None]
  - INFLUENZA LIKE ILLNESS [None]
  - LIVER FUNCTION TEST ABNORMAL [None]
  - MYALGIA [None]
  - PYREXIA [None]
  - URTICARIA [None]
